FAERS Safety Report 3982960 (Version 4)
Quarter: 2017Q4

REPORT INFORMATION
  Report Type: Spontaneous
  Country: JP (occurrence: JP)
  Receive Date: 20030812
  Receipt Date: 20171213
  Transmission Date: 20180321
  Serious: Yes (Death, Life-Threatening, Hospitalization, Other)
  Sender: FDA-Public Use
  Company Number: JP-BRISTOL-MYERS SQUIBB COMPANY-12341533

PATIENT
  Age: 54 Year
  Sex: Male
  Weight: 51 kg

DRUGS (2)
  1. BRIPLATIN [Suspect]
     Active Substance: CISPLATIN
     Indication: GASTRIC CANCER
     Dosage: 45 MG, UNK
     Route: 041
     Dates: start: 20030720, end: 20030720
  2. TAXOL [Suspect]
     Active Substance: PACLITAXEL
     Indication: GASTRIC CANCER
     Dosage: 242 MG, UNK
     Route: 041
     Dates: start: 20030720, end: 20030720

REACTIONS (6)
  - Disseminated intravascular coagulation [Recovered/Resolved]
  - Malignant neoplasm progression [Fatal]
  - Septic shock [Recovered/Resolved]
  - Cachexia [Fatal]
  - Jaundice [Not Recovered/Not Resolved]
  - Leukopenia [Recovered/Resolved]

NARRATIVE: CASE EVENT DATE: 20030725
